FAERS Safety Report 17093962 (Version 1)
Quarter: 2019Q4

REPORT INFORMATION
  Report Type: Report from Study
  Country: KR (occurrence: KR)
  Receive Date: 20191129
  Receipt Date: 20191129
  Transmission Date: 20200122
  Serious: Yes (Other)
  Sender: FDA-Public Use
  Company Number: KR-TAKEDA-2019TUS068172

PATIENT
  Age: 52 Year
  Sex: Female

DRUGS (3)
  1. THALIDOMIDE [Concomitant]
     Active Substance: THALIDOMIDE
     Indication: PLASMA CELL MYELOMA
     Dosage: UNK
     Route: 065
     Dates: start: 2019
  2. BORTEZOMIB. [Suspect]
     Active Substance: BORTEZOMIB
     Indication: PLASMA CELL MYELOMA
     Dosage: UNK UNK, 2/WEEK
     Route: 065
     Dates: start: 2019
  3. DEXAMETHASONE. [Concomitant]
     Active Substance: DEXAMETHASONE
     Indication: PLASMA CELL MYELOMA
     Dosage: UNK
     Route: 065
     Dates: start: 2019

REACTIONS (7)
  - Tongue ulceration [Unknown]
  - Constipation [Unknown]
  - Dizziness [Unknown]
  - Vision blurred [Unknown]
  - Dyspnoea [Unknown]
  - Epistaxis [Unknown]
  - Cushing^s syndrome [Unknown]
